FAERS Safety Report 18844109 (Version 1)
Quarter: 2021Q1

REPORT INFORMATION
  Report Type: Report from Study
  Country: US (occurrence: US)
  Receive Date: 20210203
  Receipt Date: 20210203
  Transmission Date: 20210419
  Serious: Yes (Hospitalization)
  Sender: FDA-Public Use
  Company Number: US-EXELIXIS-CABO-20027686

PATIENT
  Sex: Male
  Weight: 56.69 kg

DRUGS (5)
  1. CABOMETYX [Suspect]
     Active Substance: CABOZANTINIB S-MALATE
     Indication: RENAL CANCER
     Dosage: 20 MG (TAKE TWO DAILY)
     Route: 048
     Dates: start: 20200121
  2. ATORVASTATIN CALCIUM. [Concomitant]
     Active Substance: ATORVASTATIN CALCIUM
  3. PEPCID [Concomitant]
     Active Substance: FAMOTIDINE
  4. NIFEDIPINE. [Concomitant]
     Active Substance: NIFEDIPINE
  5. CABOMETYX [Suspect]
     Active Substance: CABOZANTINIB S-MALATE
     Dosage: UNK
     Dates: start: 20200121

REACTIONS (1)
  - Blood creatinine increased [Recovering/Resolving]
